FAERS Safety Report 16963265 (Version 5)
Quarter: 2024Q3

REPORT INFORMATION
  Report Type: Spontaneous
  Country: FR (occurrence: FR)
  Receive Date: 20191025
  Receipt Date: 20240830
  Transmission Date: 20241017
  Serious: Yes (Other)
  Sender: BRISTOL MYERS SQUIBB
  Company Number: FR-BRISTOL-MYERS SQUIBB COMPANY-BMS-2019-102053

PATIENT
  Age: 71 Year
  Sex: Male

DRUGS (3)
  1. NIVOLUMAB [Suspect]
     Active Substance: NIVOLUMAB
     Indication: Lung adenocarcinoma
     Dosage: 3 MILLIGRAM/KILOGRAM, Q2WK(EVERY 15 DAYS)
  2. SIROLIMUS [Suspect]
     Active Substance: SIROLIMUS
     Indication: Lung adenocarcinoma
     Dosage: UNK
  3. MYCOPHENOLATE MOFETIL [Suspect]
     Active Substance: MYCOPHENOLATE MOFETIL
     Indication: Lung adenocarcinoma
     Dosage: UNK

REACTIONS (2)
  - Kidney transplant rejection [Unknown]
  - Off label use [Unknown]
